FAERS Safety Report 6589924-7 (Version None)
Quarter: 2010Q1

REPORT INFORMATION
  Report Type: 
  Country: None (occurrence: None)
  Receive Date: 20100219
  Receipt Date: 20100209
  Transmission Date: 20100710
  Serious: Yes (Hospitalization)
  Sender: FDA-Public Use
  Company Number: GB-GENZYME-MOZO-1000304

PATIENT
  Sex: Male
  Weight: 58 kg

DRUGS (6)
  1. MOZOBIL [Suspect]
     Indication: HAEMATOPOIETIC STEM CELL MOBILISATION
     Dosage: 240 MCG/KG, QD
     Route: 058
     Dates: start: 20100117, end: 20100117
  2. MOZOBIL [Suspect]
     Indication: DIFFUSE LARGE B-CELL LYMPHOMA
  3. GRANULOCYTE COLONY STIMULATING FACTOR [Concomitant]
     Indication: NEUTROPENIA
     Dosage: 263 MCG, UNK
     Dates: start: 20100107
  4. ANTIBIOTICS [Concomitant]
     Indication: NEUTROPENIC SEPSIS
     Route: 042
  5. ACYCLOVIR [Concomitant]
     Indication: DRUG USE FOR UNKNOWN INDICATION
     Dosage: 200 MG, TID
  6. SULFINPYRAZONE [Concomitant]
     Indication: DRUG USE FOR UNKNOWN INDICATION
     Dosage: 200 MG, QD

REACTIONS (2)
  - SEPSIS [None]
  - THERAPEUTIC RESPONSE DECREASED [None]
